FAERS Safety Report 7964486 (Version 2)
Quarter: 2014Q1

REPORT INFORMATION
  Report Type: Report from Study
  Country: DZ (occurrence: DZ)
  Receive Date: 20110527
  Receipt Date: 20140120
  Transmission Date: 20141002
  Serious: Yes (Other)
  Sender: FDA-Public Use
  Company Number: DZ-ROCHE-778684

PATIENT
  Age: 45 Year
  Sex: Female

DRUGS (5)
  1. TRASTUZUMAB [Suspect]
     Indication: BREAST CANCER
     Dosage: CHARGE DOSE. FREQUENCY: PER CURE
     Route: 042
     Dates: start: 20110110, end: 20110314
  2. TRASTUZUMAB [Suspect]
     Dosage: MAINTANANCE DOSE
     Route: 042
     Dates: start: 20110110, end: 20110221
  3. DOCETAXEL [Suspect]
     Indication: HER-2 POSITIVE BREAST CANCER
     Dosage: 8 CURES
     Route: 065
  4. DOXORUBICIN [Suspect]
     Indication: HER-2 POSITIVE BREAST CANCER
     Dosage: 8 CURES
     Route: 065
  5. CYCLOPHOSPHAMIDE [Suspect]
     Indication: HER-2 POSITIVE BREAST CANCER
     Dosage: 8 CURES
     Route: 065

REACTIONS (3)
  - Ventricular hypokinesia [Not Recovered/Not Resolved]
  - Dilatation ventricular [Not Recovered/Not Resolved]
  - Ejection fraction decreased [Not Recovered/Not Resolved]
